FAERS Safety Report 5503221-X (Version None)
Quarter: 2007Q4

REPORT INFORMATION
  Report Type: 
  Country: None (occurrence: None)
  Receive Date: 20071031
  Receipt Date: 20071017
  Transmission Date: 20080405
  Serious: Yes (Hospitalization)
  Sender: FDA-Public Use
  Company Number: FR-GENENTECH-249456

PATIENT
  Sex: Male

DRUGS (4)
  1. BEVACIZUMAB [Suspect]
     Indication: COLORECTAL CANCER METASTATIC
     Dosage: 234 MG, Q3W
     Route: 042
     Dates: start: 20070926
  2. IRINOTECAN HCL [Suspect]
     Indication: COLORECTAL CANCER METASTATIC
     Dosage: 374 MG, Q3W
     Route: 042
     Dates: start: 20070926, end: 20070926
  3. CAPECITABINE [Suspect]
     Indication: COLORECTAL CANCER METASTATIC
     Dosage: UNK, Q3W
     Route: 048
  4. CLINOMEL [Concomitant]
     Indication: DRUG USE FOR UNKNOWN INDICATION
     Dates: start: 20071001, end: 20071006

REACTIONS (3)
  - APLASIA [None]
  - HAEMOGLOBIN DECREASED [None]
  - PYREXIA [None]
